FAERS Safety Report 16271393 (Version 1)
Quarter: 2019Q2

REPORT INFORMATION
  Report Type: Spontaneous
  Country: US (occurrence: US)
  Receive Date: 20190503
  Receipt Date: 20190503
  Transmission Date: 20190711
  Serious: Yes (Other)
  Sender: FDA-Public Use
  Company Number: US-AMGEN-USASP2019067994

PATIENT
  Age: 70 Year
  Sex: Female

DRUGS (2)
  1. BLINCYTO [Suspect]
     Active Substance: BLINATUMOMAB
     Indication: ACUTE LYMPHOCYTIC LEUKAEMIA RECURRENT
     Dosage: UNK
     Route: 065
     Dates: end: 201903
  2. BLINCYTO [Suspect]
     Active Substance: BLINATUMOMAB
     Dosage: 09 MICROGRAM, QD
     Route: 065
     Dates: start: 20190417

REACTIONS (1)
  - Neurotoxicity [Not Recovered/Not Resolved]
